FAERS Safety Report 23438954 (Version 1)
Quarter: 2024Q1

REPORT INFORMATION
  Report Type: Spontaneous
  Country: US (occurrence: None)
  Receive Date: 20240124
  Receipt Date: 20240124
  Transmission Date: 20240409
  Serious: No
  Sender: FDA-Public Use
  Company Number: None

PATIENT
  Sex: 0

DRUGS (1)
  1. FELBAMATE [Suspect]
     Active Substance: FELBAMATE

REACTIONS (2)
  - Seizure [None]
  - Treatment failure [None]
